FAERS Safety Report 13705897 (Version 2)
Quarter: 2017Q3

REPORT INFORMATION
  Report Type: Report from Study
  Country: US (occurrence: US)
  Receive Date: 20170630
  Receipt Date: 20170707
  Transmission Date: 20171127
  Serious: Yes (Hospitalization)
  Sender: FDA-Public Use
  Company Number: US-BAYER-2017-119695

PATIENT
  Age: 48 Year
  Sex: Male

DRUGS (1)
  1. STIVARGA [Suspect]
     Active Substance: REGORAFENIB
     Indication: COLON CANCER
     Dosage: 80 MG DAILY
     Route: 048
     Dates: start: 201705, end: 20170616

REACTIONS (11)
  - Dehydration [None]
  - Volvulus [None]
  - Haemorrhage [None]
  - Hyperhidrosis [None]
  - Wheezing [None]
  - Vomiting [None]
  - Abdominal distension [None]
  - Cough [None]
  - Intestinal obstruction [None]
  - Retching [None]
  - Fatigue [None]

NARRATIVE: CASE EVENT DATE: 201705
